FAERS Safety Report 7420799-X (Version None)
Quarter: 2011Q2

REPORT INFORMATION
  Report Type: 
  Country: None (occurrence: None)
  Receive Date: 20110418
  Receipt Date: 20110415
  Transmission Date: 20111010
  Serious: Yes (Death, Hospitalization)
  Sender: FDA-Public Use
  Company Number: US-B.I. PHARMACEUTICALS,INC./RIDGEFIELD-2009-BP-11478BP

PATIENT
  Sex: Male

DRUGS (9)
  1. LISINOPRIL [Concomitant]
  2. METFORMIN [Concomitant]
  3. LASIX [Concomitant]
  4. RIFAMPIN [Concomitant]
  5. GLIPIZIDE [Concomitant]
  6. LIPITOR [Concomitant]
  7. COMBIVENT [Suspect]
     Indication: DYSPNOEA
  8. BACTRIM [Concomitant]
  9. COMBIVENT [Suspect]
     Indication: CHRONIC OBSTRUCTIVE PULMONARY DISEASE
     Route: 055
     Dates: start: 20090627, end: 20090629

REACTIONS (4)
  - ANXIETY [None]
  - POST PROCEDURAL COMPLICATION [None]
  - STAPHYLOCOCCAL INFECTION [None]
  - RASH [None]
